FAERS Safety Report 8397767-7 (Version None)
Quarter: 2012Q2

REPORT INFORMATION
  Report Type: 
  Country: None (occurrence: None)
  Receive Date: 20120323
  Receipt Date: 20110216
  Transmission Date: 20120825
  Serious: Yes (Hospitalization, Other)
  Sender: FDA-Public Use
  Company Number: 163-21880-11011687

PATIENT
  Age: 60 Year
  Sex: Female

DRUGS (5)
  1. DECADRON [Concomitant]
  2. ACYCLOVIR [Concomitant]
  3. REVLIMID [Suspect]
     Indication: MULTIPLE MYELOMA
     Dosage: 25 MG, 1 IN 1 D, PO 10 MG, 1 IN 1 D, PO 5 MG, 1 IN 1 D, PO
     Route: 048
     Dates: start: 20080307
  4. REVLIMID [Suspect]
     Indication: MULTIPLE MYELOMA
     Dosage: 25 MG, 1 IN 1 D, PO 10 MG, 1 IN 1 D, PO 5 MG, 1 IN 1 D, PO
     Route: 048
     Dates: start: 20110114
  5. REVLIMID [Suspect]
     Indication: MULTIPLE MYELOMA
     Dosage: 25 MG, 1 IN 1 D, PO 10 MG, 1 IN 1 D, PO 5 MG, 1 IN 1 D, PO
     Route: 048
     Dates: start: 20081009

REACTIONS (1)
  - NEUTROPENIA [None]
